FAERS Safety Report 4667644-3 (Version None)
Quarter: 2005Q2

REPORT INFORMATION
  Report Type: 
  Country: None (occurrence: None)
  Receive Date: 20050520
  Receipt Date: 20040824
  Transmission Date: 20051028
  Serious: Yes (Death, Other)
  Sender: FDA-Public Use
  Company Number: PHNU2004DE02980

PATIENT
  Sex: Female
  Weight: 70 kg

DRUGS (10)
  1. AREDIA [Suspect]
     Indication: METASTASES TO BONE
     Dosage: 90 MG, QMO
     Dates: start: 19990727, end: 20040524
  2. VINORELBINE TARTRATE [Suspect]
     Dates: start: 20020820, end: 20030311
  3. TAMOXIFEN [Concomitant]
     Dosage: 30MG/DAY
     Route: 048
     Dates: start: 19990101, end: 20010625
  4. ARIMIDEX [Concomitant]
     Dosage: 1 MG, QD
     Route: 048
     Dates: start: 20010626
  5. DOCETAXEL [Concomitant]
     Dates: start: 20030620, end: 20031121
  6. DEXAMETASON [Concomitant]
     Route: 065
  7. DEXTROMORAMIDE TARTRATE [Concomitant]
     Route: 065
  8. LORAZEPAM [Concomitant]
     Route: 048
  9. NOVAMINSULFON ^LICHTENSTEIN^ [Concomitant]
     Indication: PAIN
     Dosage: UP TO 3 X 30 DRPS/PRN
     Route: 048
     Dates: start: 20040401
  10. RADIOTHERAPY [Suspect]
     Route: 065
     Dates: start: 20011201, end: 20020101

REACTIONS (9)
  - DISEASE PROGRESSION [None]
  - FAILURE OF IMPLANT [None]
  - JAW DISORDER [None]
  - MUCOSAL EROSION [None]
  - OSTEITIS [None]
  - OSTEONECROSIS [None]
  - PLASTIC SURGERY [None]
  - SEQUESTRECTOMY [None]
  - WOUND DEBRIDEMENT [None]
